FAERS Safety Report 9700426 (Version 2)
Quarter: 2013Q4

REPORT INFORMATION
  Report Type: Spontaneous
  Country: US (occurrence: US)
  Receive Date: 20131121
  Receipt Date: 20131121
  Transmission Date: 20140711
  Serious: No
  Sender: FDA-Public Use
  Company Number: US-MYLANLABS-2013S1018988

PATIENT
  Age: 56 Year
  Sex: Male
  Weight: 82.56 kg

DRUGS (1)
  1. OCTREOTIDE ACETATE INJECTION 50MCG/ML [Suspect]
     Indication: CARCINOID TUMOUR
     Route: 058
     Dates: start: 20130818

REACTIONS (1)
  - Injection site pain [Not Recovered/Not Resolved]
